FAERS Safety Report 9188568 (Version 1)
Quarter: 2013Q1

REPORT INFORMATION
  Report Type: Report from Study
  Country: ES (occurrence: ES)
  Receive Date: 20130325
  Receipt Date: 20130325
  Transmission Date: 20140127
  Serious: Yes (Other)
  Sender: FDA-Public Use
  Company Number: ES-PFIZER INC-2013086209

PATIENT
  Age: 57 Year
  Sex: Male

DRUGS (2)
  1. TEMSIROLIMUS [Suspect]
     Indication: RENAL CANCER METASTATIC
     Dosage: 25 MG, WEEKLY
     Route: 042
  2. TEMSIROLIMUS [Suspect]
     Indication: METASTASES TO LUNG

REACTIONS (3)
  - Hypothyroidism [Recovered/Resolved]
  - Mumps [Unknown]
  - Asthenia [Unknown]
